FAERS Safety Report 7668162-0 (Version None)
Quarter: 2011Q3

REPORT INFORMATION
  Report Type: 
  Country: None (occurrence: None)
  Receive Date: 20110808
  Receipt Date: 20110801
  Transmission Date: 20111222
  Serious: Yes (Hospitalization)
  Sender: FDA-Public Use
  Company Number: FR-PFIZER INC-2011173091

PATIENT
  Age: 59 Year
  Sex: Male

DRUGS (2)
  1. FLUCONAZOLE [Suspect]
     Dosage: 400 MG, DAILY
     Route: 048
     Dates: start: 20100801
  2. FLUCONAZOLE [Suspect]
     Dosage: 200 MG, DAILY
     Route: 048
     Dates: start: 20101201

REACTIONS (2)
  - RENAL IMPAIRMENT [None]
  - RENAL TUBULAR DISORDER [None]
